FAERS Safety Report 8764156 (Version 1)
Quarter: 2012Q4

REPORT INFORMATION
  Report Type: 
  Country: DE (occurrence: DE)
  Receive Date: 20120831
  Receipt Date: 20120831
  Transmission Date: 20130627
  Serious: Yes (Other)
  Sender: FDA-Public Use
  Company Number: DE-UCBSA-064508

PATIENT
  Age: 86 Year
  Sex: Female
  Weight: 70 kg

DRUGS (5)
  1. KEPPRA [Suspect]
     Dosage: UNKNOWN QUANTITY
     Route: 048
     Dates: start: 20120824
  2. QUETIAPIN 300 [Suspect]
     Dosage: DOSE 300 MG ONE TABLET
     Route: 048
     Dates: start: 20120824
  3. MIRTAZAPIN 30 [Suspect]
     Dosage: TOTAL 30 MG ONE TABLET
     Route: 048
     Dates: start: 20120824
  4. MIRTAZAPIN 30 [Suspect]
     Dosage: DAILY DOSE 7.5 MG
  5. PRAMIPREXOL [Suspect]
     Dosage: UNKNOWN QUANTITY
     Route: 048
     Dates: start: 20120824

REACTIONS (1)
  - Accidental exposure to product [Unknown]
